FAERS Safety Report 6886114-5 (Version None)
Quarter: 2010Q3

REPORT INFORMATION
  Report Type: 
  Country: None (occurrence: None)
  Receive Date: 20100729
  Receipt Date: 20080519
  Transmission Date: 20110219
  Serious: Yes (Other)
  Sender: FDA-Public Use
  Company Number: US-PFIZER INC-2008027094

PATIENT
  Age: 28 Year
  Sex: Female

DRUGS (2)
  1. CELEBREX [Suspect]
     Indication: FACIAL PAIN
     Dosage: QD-BID:EVERY DAY
     Route: 048
  2. NSAID'S [Suspect]

REACTIONS (3)
  - BLOOD CREATININE INCREASED [None]
  - HELICOBACTER TEST POSITIVE [None]
  - INTESTINAL PERFORATION [None]
